FAERS Safety Report 26094435 (Version 1)
Quarter: 2025Q4

REPORT INFORMATION
  Report Type: Spontaneous
  Country: US (occurrence: US)
  Receive Date: 20251126
  Receipt Date: 20251126
  Transmission Date: 20260118
  Serious: No
  Sender: BRISTOL-MYERS SQUIBB COMPANY
  Company Number: US-BRISTOL-MYERS SQUIBB COMPANY-2025-159733

PATIENT
  Age: 71 Year
  Sex: Female

DRUGS (1)
  1. ORENCIA [Suspect]
     Active Substance: ABATACEPT
     Indication: Product used for unknown indication
     Route: 058

REACTIONS (7)
  - Arthralgia [Unknown]
  - Pyrexia [Unknown]
  - Pain in extremity [Unknown]
  - Sinusitis [Unknown]
  - Insomnia [Unknown]
  - Gait disturbance [Unknown]
  - Pain [Unknown]
